FAERS Safety Report 21301425 (Version 1)
Quarter: 2022Q3

REPORT INFORMATION
  Report Type: Report from Study
  Country: EG (occurrence: EG)
  Receive Date: 20220907
  Receipt Date: 20220907
  Transmission Date: 20221027
  Serious: Yes (Other)
  Sender: FDA-Public Use
  Company Number: EG-NOVARTISPH-NVSC2022EG197911

PATIENT
  Age: 63 Year
  Sex: Female

DRUGS (15)
  1. KISQALI [Suspect]
     Active Substance: RIBOCICLIB
     Indication: Breast cancer metastatic
     Dosage: 2 DOSAGE FORM, QD (FOR 3 WEEKS THEN 1 WEEK OFF AS PRESCRIBED BY HER HCP)
     Route: 048
     Dates: start: 20200501, end: 202205
  2. KISQALI [Suspect]
     Active Substance: RIBOCICLIB
     Indication: Metastases to bone
  3. EXEMESTANE [Concomitant]
     Active Substance: EXEMESTANE
     Indication: Breast cancer metastatic
     Dosage: 1 DOSAGE FORM, QD (STARTED AFTER STOPPING KISQALI FOR 2 MONTH)
     Route: 065
  4. ROYAL [Concomitant]
     Indication: Vitamin supplementation
     Dosage: UNK, QD
     Route: 065
  5. VITAMIN B [Concomitant]
     Active Substance: VITAMIN B
     Indication: Vitamin supplementation
     Dosage: UNK, QD
     Route: 065
  6. CALCIUM [Concomitant]
     Active Substance: CALCIUM
     Indication: Vitamin supplementation
     Dosage: UNK, QD
     Route: 065
  7. VITAMIN D [Concomitant]
     Active Substance: VITAMIN D NOS
     Indication: Vitamin supplementation
     Dosage: 2 DOSAGE FORM, QW
     Route: 065
  8. XGEVA [Concomitant]
     Active Substance: DENOSUMAB
     Indication: Breast cancer metastatic
     Dosage: UNK (STARTED 3 YEARS AGO THEN PATIENT STOPPED IT)
     Route: 065
  9. XGEVA [Concomitant]
     Active Substance: DENOSUMAB
     Indication: Metastases to bone
  10. FASLODEX [Concomitant]
     Active Substance: FULVESTRANT
     Indication: Breast cancer metastatic
     Dosage: 2 DOSAGE FORM, QMO (AMPOULES)
     Route: 065
     Dates: end: 202205
  11. FASLODEX [Concomitant]
     Active Substance: FULVESTRANT
     Indication: Metastases to bone
  12. CIPROBAY [Concomitant]
     Indication: Necrosis
     Dosage: UNK ( ADMINISTERED FOR ONE MONTH)
     Route: 065
  13. LEVOFLOXACIN [Concomitant]
     Active Substance: LEVOFLOXACIN
     Indication: Necrosis
     Dosage: UNK ( ADMINISTERED FOR ONE MONTH)
     Route: 065
  14. CEFTRIAXONE [Concomitant]
     Active Substance: CEFTRIAXONE
     Indication: Necrosis
     Dosage: UNK ( ADMINISTERED FOR ONE MONTH)
     Route: 065
  15. CLINDAMYCIN HYDROCHLORIDE [Concomitant]
     Active Substance: CLINDAMYCIN HYDROCHLORIDE
     Indication: Necrosis
     Dosage: UNK ( ADMINISTERED FOR ONE MONTH)
     Route: 065

REACTIONS (8)
  - Neoplasm progression [Unknown]
  - Mental fatigue [Recovering/Resolving]
  - Dental necrosis [Recovered/Resolved]
  - Eating disorder [Recovered/Resolved]
  - Stress [Recovering/Resolving]
  - Tooth infection [Recovered/Resolved]
  - Hyperchlorhydria [Recovering/Resolving]
  - Pain [Recovering/Resolving]

NARRATIVE: CASE EVENT DATE: 20220201
